FAERS Safety Report 25634349 (Version 2)
Quarter: 2025Q3

REPORT INFORMATION
  Report Type: Spontaneous
  Country: EU (occurrence: EU)
  Receive Date: 20250801
  Receipt Date: 20250808
  Transmission Date: 20251020
  Serious: Yes (Other)
  Sender: BIOCON
  Company Number: EU-MIMS-BCONMC-16763

PATIENT

DRUGS (1)
  1. HULIO [Suspect]
     Active Substance: ADALIMUMAB-FKJP
     Indication: Ankylosing spondylitis
     Route: 065
     Dates: start: 20250628, end: 20250712

REACTIONS (6)
  - Ankylosing spondylitis [Unknown]
  - Injection site discharge [Unknown]
  - Product dose omission issue [Unknown]
  - Product use complaint [Unknown]
  - Incorrect dose administered [Unknown]
  - Device leakage [Unknown]
